FAERS Safety Report 9377698 (Version 1)
Quarter: 2013Q2

REPORT INFORMATION
  Report Type: Spontaneous
  Country: US (occurrence: None)
  Receive Date: 20130625
  Receipt Date: 20130625
  Transmission Date: 20140414
  Serious: Yes (Hospitalization)
  Sender: FDA-Public Use
  Company Number: DKLU1091729

PATIENT
  Age: 41 Year
  Sex: Male

DRUGS (1)
  1. DESOXYN (METHAMPHETAMINE HCL) [Suspect]
     Indication: PRODUCT USED FOR UNKNOWN INDICATION

REACTIONS (41)
  - Confusional state [None]
  - Hyperthermia [None]
  - Hypotension [None]
  - Muscle spasms [None]
  - Nausea [None]
  - Vomiting [None]
  - Depressed level of consciousness [None]
  - Agitation [None]
  - Cyanosis [None]
  - Sinus tachycardia [None]
  - Electrocardiogram T wave peaked [None]
  - Blood sodium increased [None]
  - Hyperkalaemia [None]
  - Blood bicarbonate increased [None]
  - Blood glucose decreased [None]
  - Blood calcium increased [None]
  - White blood cell count increased [None]
  - Haemoglobin increased [None]
  - Haematocrit increased [None]
  - Platelet count increased [None]
  - Blood lactic acid increased [None]
  - Blood alkaline phosphatase increased [None]
  - Aspartate aminotransferase increased [None]
  - Alanine aminotransferase increased [None]
  - Blood pH decreased [None]
  - PCO2 increased [None]
  - PO2 increased [None]
  - Blood creatine phosphokinase increased [None]
  - Continuous haemodiafiltration [None]
  - Renal failure acute [None]
  - Rectal haemorrhage [None]
  - Gastric haemorrhage [None]
  - Acute abdomen [None]
  - Intestinal infarction [None]
  - Intestinal ischaemia [None]
  - Gastrointestinal necrosis [None]
  - Intestinal haemorrhage [None]
  - Vasculitis gastrointestinal [None]
  - Refusal of treatment by patient [None]
  - Anaphylactic shock [None]
  - Drug abuse [None]
